FAERS Safety Report 24548142 (Version 1)
Quarter: 2024Q4

REPORT INFORMATION
  Report Type: Report from Study
  Country: AT (occurrence: AT)
  Receive Date: 20241025
  Receipt Date: 20241025
  Transmission Date: 20250115
  Serious: Yes (Hospitalization)
  Sender: ABBVIE
  Company Number: AT-ABBVIE-5965660

PATIENT
  Age: 73 Year
  Sex: Female

DRUGS (2)
  1. FOSCARBIDOPA\FOSLEVODOPA [Suspect]
     Active Substance: FOSCARBIDOPA\FOSLEVODOPA
     Indication: Parkinson^s disease
     Dosage: CR 0,38ML/H; CRHIGH 0,40ML/H; CRLOW 0,30ML/H; ED 0,15ML BLOCKING TIME 1H
     Route: 058
  2. FOSCARBIDOPA\FOSLEVODOPA [Suspect]
     Active Substance: FOSCARBIDOPA\FOSLEVODOPA
     Dosage: CR 0,35ML/H; CRHIGH 0,38ML/H; CRLOW 0,20ML/H; ED 0,15ML BLOCKING TIME 1H
     Route: 058
     Dates: start: 20240603

REACTIONS (3)
  - Asthenia [Recovering/Resolving]
  - COVID-19 [Recovered/Resolved with Sequelae]
  - Hypokinesia [Recovered/Resolved]

NARRATIVE: CASE EVENT DATE: 20240101
